FAERS Safety Report 5339507-1 (Version None)
Quarter: 2007Q2

REPORT INFORMATION
  Report Type: 
  Country: None (occurrence: None)
  Receive Date: 20070523
  Receipt Date: 20070515
  Transmission Date: 20071010
  Serious: Yes (Death)
  Sender: FDA-Public Use
  Company Number: B0471546A

PATIENT
  Age: 15 Year
  Sex: Male

DRUGS (6)
  1. MELPHALAN (FORMULATION UNKNOWN) (GENERIC) (MELPHALAN) [Suspect]
     Indication: PRIMITIVE NEUROECTODERMAL TUMOUR
     Dosage: 60 MG/M2/ CYCLIC
  2. CYCLOPHOSPHAMIDE [Suspect]
     Indication: PRIMITIVE NEUROECTODERMAL TUMOUR
     Dosage: 1500 MG/M2 / CYCLIC
  3. RADIOTHERAPY [Concomitant]
  4. CANCER CHEMOTHERAPY [Concomitant]
  5. SURGERY [Concomitant]
  6. AUTO STEM CELL INFUSION [Concomitant]

REACTIONS (1)
  - SEPSIS [None]
